FAERS Safety Report 8304177-7 (Version None)
Quarter: 2012Q2

REPORT INFORMATION
  Report Type: 
  Country: None (occurrence: None)
  Receive Date: 20120423
  Receipt Date: 20120413
  Transmission Date: 20120825
  Serious: Yes (Other)
  Sender: FDA-Public Use
  Company Number: GB-JNJFOC-20120407568

PATIENT
  Age: 77 Year
  Sex: Male

DRUGS (8)
  1. ACULAR [Concomitant]
     Indication: PRODUCT USED FOR UNKNOWN INDICATION
     Route: 031
  2. ATORVASTATIN [Concomitant]
     Indication: PRODUCT USED FOR UNKNOWN INDICATION
     Route: 048
  3. ZYTIGA [Suspect]
     Indication: PROSTATE CANCER
     Route: 048
  4. PHOSPHATE-SANDOZ [Concomitant]
     Indication: PRODUCT USED FOR UNKNOWN INDICATION
     Route: 048
  5. MAXIDEX (EYE DROPS) [Concomitant]
     Indication: PRODUCT USED FOR UNKNOWN INDICATION
     Route: 031
  6. OMEPRAZOLE [Concomitant]
     Indication: PRODUCT USED FOR UNKNOWN INDICATION
     Route: 048
  7. PREDNISOLONE [Concomitant]
     Indication: PRODUCT USED FOR UNKNOWN INDICATION
     Route: 048
  8. FERROUS SULFATE TAB [Concomitant]
     Indication: PRODUCT USED FOR UNKNOWN INDICATION
     Route: 048

REACTIONS (3)
  - DYSGEUSIA [None]
  - DRY MOUTH [None]
  - HYPOPHAGIA [None]
